FAERS Safety Report 18141499 (Version 2)
Quarter: 2021Q3

REPORT INFORMATION
  Report Type: Spontaneous
  Country: FI (occurrence: FI)
  Receive Date: 20200812
  Receipt Date: 20210802
  Transmission Date: 20211014
  Serious: Yes (Death, Hospitalization, Other)
  Sender: FDA-Public Use
  Company Number: FI-AMGEN-FINSP2020126365

PATIENT

DRUGS (13)
  1. DEXAMETHASONE. [Concomitant]
     Active Substance: DEXAMETHASONE
  2. LENALIDOMIDE [Concomitant]
     Active Substance: LENALIDOMIDE
  3. CYTARABINE. [Concomitant]
     Active Substance: CYTARABINE
  4. IFOSFAMIDE. [Concomitant]
     Active Substance: IFOSFAMIDE
  5. PEGFILGRASTIM [Suspect]
     Active Substance: PEGFILGRASTIM
     Indication: HAEMATOPOIETIC STEM CELL MOBILISATION
     Dosage: 6 MILLIGRAM
     Route: 065
  6. BORTEZOMIB. [Concomitant]
     Active Substance: BORTEZOMIB
  7. PLERIXAFOR [Concomitant]
     Active Substance: PLERIXAFOR
  8. FILGRASTIM [Suspect]
     Active Substance: FILGRASTIM
     Indication: HAEMATOPOIETIC STEM CELL MOBILISATION
     Dosage: 5 MICROGRAM/KILOGRAM
     Route: 065
  9. CARBOPLATIN. [Concomitant]
     Active Substance: CARBOPLATIN
  10. ETOPOSIDE. [Concomitant]
     Active Substance: ETOPOSIDE
  11. CISPLATIN. [Concomitant]
     Active Substance: CISPLATIN
  12. FILGRASTIM [Suspect]
     Active Substance: FILGRASTIM
     Dosage: 10 MICROGRAM/KILOGRAM
     Route: 065
  13. CYCLOPHOSPHAMIDE. [Concomitant]
     Active Substance: CYCLOPHOSPHAMIDE
     Dosage: 2 GRAM PER METRE SQ. TO MM PATIENT AND 4 GRAM PER METRE SQ. TO NHL PATIENT

REACTIONS (13)
  - Death [Fatal]
  - Therapeutic product effect incomplete [Unknown]
  - Infection [Unknown]
  - Sepsis [Unknown]
  - Bacteraemia [Unknown]
  - Pneumocystis jirovecii infection [Unknown]
  - Varicella zoster virus infection [Unknown]
  - Lymphocyte count decreased [Unknown]
  - Febrile neutropenia [Unknown]
  - Off label use [Unknown]
  - Non-Hodgkin^s lymphoma [Fatal]
  - Plasma cell myeloma [Fatal]
  - Pneumonia [Unknown]
